FAERS Safety Report 25904683 (Version 1)
Quarter: 2025Q4

REPORT INFORMATION
  Report Type: Spontaneous
  Country: CA (occurrence: CA)
  Receive Date: 20251010
  Receipt Date: 20251010
  Transmission Date: 20260119
  Serious: Yes (Other)
  Sender: ROCHE
  Company Number: CA-ROCHE-10000402864

PATIENT
  Age: 57 Year
  Sex: Male

DRUGS (4)
  1. RITUXIMAB [Suspect]
     Active Substance: RITUXIMAB
     Indication: Sjogren^s syndrome
     Dosage: DOSE AND FREQUENCY: NOT REPORTED
     Route: 042
  2. ACETAMINOPHEN [Concomitant]
     Active Substance: ACETAMINOPHEN
     Indication: Product used for unknown indication
     Route: 048
  3. DIPHENHYDRAMINE [Concomitant]
     Active Substance: DIPHENHYDRAMINE
     Indication: Product used for unknown indication
     Route: 048
  4. METHYLPREDNISOLONE [Concomitant]
     Active Substance: METHYLPREDNISOLONE
     Indication: Product used for unknown indication
     Route: 042

REACTIONS (12)
  - Acute interstitial pneumonitis [Unknown]
  - Disease recurrence [Unknown]
  - Dizziness [Unknown]
  - Dyspnoea [Unknown]
  - Malaise [Unknown]
  - Off label use [Unknown]
  - Oropharyngeal discomfort [Unknown]
  - Pain [Unknown]
  - Pain in extremity [Unknown]
  - Sjogren^s syndrome [Unknown]
  - Syncope [Unknown]
  - Vision blurred [Unknown]
